FAERS Safety Report 21756138 (Version 2)
Quarter: 2023Q1

REPORT INFORMATION
  Report Type: Report from Study
  Country: US (occurrence: US)
  Receive Date: 20221220
  Receipt Date: 20230324
  Transmission Date: 20230418
  Serious: Yes (Hospitalization)
  Sender: FDA-Public Use
  Company Number: US-SEATTLE GENETICS-2022SGN11875

PATIENT
  Age: 63 Year
  Sex: Female
  Weight: 77.5 kg

DRUGS (5)
  1. TUCATINIB [Suspect]
     Active Substance: TUCATINIB
     Indication: Invasive breast carcinoma
     Dosage: UNK
     Route: 048
     Dates: start: 20221117, end: 20221209
  2. TUCATINIB [Suspect]
     Active Substance: TUCATINIB
     Indication: Invasive breast carcinoma
     Dosage: UNK
     Route: 048
     Dates: start: 20221117, end: 20221209
  3. TUCATINIB [Suspect]
     Active Substance: TUCATINIB
     Dosage: TOTAL DOSE ADMINISTERED THIS COURSE: 1800 MG
     Route: 048
     Dates: start: 20221208, end: 20221209
  4. TUCATINIB [Suspect]
     Active Substance: TUCATINIB
     Dosage: TOTAL DOSE ADMINISTERED THIS COURSE: 1800 MG
     Route: 048
     Dates: start: 20221208, end: 20221209
  5. ADO-TRASTUZUMAB EMTANSINE [Suspect]
     Active Substance: ADO-TRASTUZUMAB EMTANSINE
     Indication: Invasive breast carcinoma
     Dosage: TOTAL DOSE ADMINISTERED THIS COURSE: 290 MG
     Route: 042
     Dates: start: 20221208, end: 20221211

REACTIONS (3)
  - Platelet count decreased [Recovering/Resolving]
  - Aspartate aminotransferase increased [Recovering/Resolving]
  - Alanine aminotransferase increased [Recovering/Resolving]

NARRATIVE: CASE EVENT DATE: 20221212
